FAERS Safety Report 20297766 (Version 2)
Quarter: 2022Q1

REPORT INFORMATION
  Report Type: Spontaneous
  Country: US (occurrence: None)
  Receive Date: 20220105
  Receipt Date: 20220221
  Transmission Date: 20220423
  Serious: Yes (Hospitalization)
  Sender: FDA-Public Use
  Company Number: US-ROCHE-2995704

PATIENT
  Sex: Male

DRUGS (11)
  1. ESBRIET [Suspect]
     Active Substance: PIRFENIDONE
     Indication: Idiopathic pulmonary fibrosis
     Dosage: 3 TIMES DAILY; ONGOING: YES
     Route: 048
     Dates: start: 20190108
  2. CEFPODOXIME [Concomitant]
     Active Substance: CEFPODOXIME
     Dosage: 1 TABLET EVERY 12 HOURS FOR 10 DAYS
     Route: 048
  3. METHYLPREDNISOLONE [Concomitant]
     Active Substance: METHYLPREDNISOLONE
     Dosage: 1 TABLET EVERY DAY FOR 10 DAYS
     Route: 048
  4. AZELASTINE [Concomitant]
     Active Substance: AZELASTINE
     Route: 045
  5. BUSPAR DIVIDOSE [Concomitant]
  6. BREO ELLIPTA [Concomitant]
     Active Substance: FLUTICASONE FUROATE\VILANTEROL TRIFENATATE
     Dosage: 200MCG-25 MCG/INH INHALATION POWDER
  7. FUROSEMIDE [Concomitant]
     Active Substance: FUROSEMIDE
     Route: 048
  8. LOSARTAN [Concomitant]
     Active Substance: LOSARTAN
     Route: 048
  9. POTASSIUM CHLORIDE [Concomitant]
     Active Substance: POTASSIUM CHLORIDE
  10. PRASUGREL [Concomitant]
     Active Substance: PRASUGREL
     Route: 048
  11. JANUMET [Concomitant]
     Active Substance: METFORMIN HYDROCHLORIDE\SITAGLIPTIN PHOSPHATE
     Route: 048

REACTIONS (6)
  - Sepsis [Unknown]
  - Acute respiratory failure [Unknown]
  - Hypoxia [Unknown]
  - Troponin increased [Unknown]
  - Interstitial lung disease [Unknown]
  - Acute myocardial infarction [Unknown]
